FAERS Safety Report 8318986-1 (Version None)
Quarter: 2012Q2

REPORT INFORMATION
  Report Type: 
  Country: None (occurrence: None)
  Receive Date: 20120427
  Receipt Date: 20120420
  Transmission Date: 20120825
  Serious: Yes (Life-Threatening, Other)
  Sender: FDA-Public Use
  Company Number: GB-ABBOTT-10P-167-0639676-00

PATIENT
  Sex: Female
  Weight: 90 kg

DRUGS (5)
  1. ACETAMINOPHEN AND CODEINE PHOSPHATE [Concomitant]
     Indication: ARTHRITIS
     Dosage: 8/500MG
     Route: 048
     Dates: start: 20050101
  2. VALLERGAN [Concomitant]
     Indication: PRURITUS
     Dosage: AT NIGHT
     Route: 048
     Dates: start: 20050101
  3. METHOTREXATE [Concomitant]
     Indication: PSORIASIS
     Route: 048
     Dates: start: 20010101
  4. RANITIDINE [Concomitant]
     Indication: GASTROOESOPHAGEAL REFLUX DISEASE
     Route: 048
     Dates: start: 20050101
  5. HUMIRA [Suspect]
     Indication: PSORIASIS
     Route: 058
     Dates: start: 20100118, end: 20100405

REACTIONS (7)
  - DYSPHAGIA [None]
  - FEELING COLD [None]
  - PARAESTHESIA ORAL [None]
  - DYSPNOEA [None]
  - ANAPHYLACTIC REACTION [None]
  - FEELING ABNORMAL [None]
  - DIZZINESS [None]
